FAERS Safety Report 6834847-9 (Version None)
Quarter: 2010Q3

REPORT INFORMATION
  Report Type: 
  Country: None (occurrence: None)
  Receive Date: 20100712
  Receipt Date: 20070723
  Transmission Date: 20110219
  Serious: No
  Sender: FDA-Public Use
  Company Number: US-PFIZER INC-2007026832

PATIENT
  Sex: Female
  Weight: 61.23 kg

DRUGS (8)
  1. CHANTIX [Suspect]
     Indication: SMOKING CESSATION THERAPY
     Dates: start: 20070101
  2. ADVAIR DISKUS 100/50 [Concomitant]
  3. SPIRIVA [Concomitant]
  4. ESTROGENS [Concomitant]
  5. FLUVASTATIN [Concomitant]
  6. CLONAZEPAM [Concomitant]
     Indication: ANXIETY
  7. LISINOPRIL [Concomitant]
  8. CITALOPRAM HYDROBROMIDE [Concomitant]

REACTIONS (2)
  - NAUSEA [None]
  - WEIGHT INCREASED [None]
